FAERS Safety Report 11442765 (Version 1)
Quarter: 2015Q3

REPORT INFORMATION
  Report Type: Spontaneous
  Country: US (occurrence: US)
  Receive Date: 20150901
  Receipt Date: 20150901
  Transmission Date: 20151125
  Serious: Yes (Hospitalization)
  Sender: FDA-Public Use
  Company Number: PHEH2015US016679

PATIENT
  Age: 64 Year
  Sex: Male

DRUGS (2)
  1. CLOZARIL [Suspect]
     Active Substance: CLOZAPINE
     Indication: PRODUCT USED FOR UNKNOWN INDICATION
     Dosage: 200 MG, QD
     Route: 065
     Dates: end: 20150707
  2. CLOZARIL [Suspect]
     Active Substance: CLOZAPINE
     Dosage: 50 NG, QD
     Route: 065
     Dates: start: 20150711, end: 20150712

REACTIONS (4)
  - Schizoaffective disorder [Unknown]
  - Neutrophil count decreased [Recovered/Resolved]
  - Thinking abnormal [Unknown]
  - White blood cell count decreased [Recovered/Resolved]

NARRATIVE: CASE EVENT DATE: 20150707
